FAERS Safety Report 6512171-1 (Version None)
Quarter: 2009Q4

REPORT INFORMATION
  Report Type: 
  Country: None (occurrence: None)
  Receive Date: 20091222
  Receipt Date: 20090615
  Transmission Date: 20100525
  Serious: Yes (Hospitalization)
  Sender: FDA-Public Use
  Company Number: US-ASTRAZENECA-2009UW15209

PATIENT
  Age: 48 Year
  Sex: Male

DRUGS (7)
  1. CRESTOR [Suspect]
     Route: 048
  2. INSULIN MPH [Concomitant]
  3. ASPIRIN [Concomitant]
  4. CYMBALTA [Concomitant]
  5. LISINOPRO [Concomitant]
  6. MULTI-VITAMIN [Concomitant]
  7. PRAVACHOL [Concomitant]

REACTIONS (2)
  - DEHYDRATION [None]
  - RHABDOMYOLYSIS [None]
